FAERS Safety Report 16035165 (Version 1)
Quarter: 2019Q1

REPORT INFORMATION
  Report Type: Spontaneous
  Country: US (occurrence: US)
  Receive Date: 20190305
  Receipt Date: 20190305
  Transmission Date: 20190418
  Serious: No
  Sender: FDA-Public Use
  Company Number: US-TEVA-2019-US-1012502

PATIENT
  Sex: Female

DRUGS (1)
  1. MUCUS ER [Suspect]
     Active Substance: GUAIFENESIN
     Route: 048
     Dates: start: 20190205, end: 20190205

REACTIONS (3)
  - Dysgeusia [Recovered/Resolved]
  - Nausea [Recovered/Resolved]
  - Incorrect dose administered [Recovered/Resolved]
